FAERS Safety Report 6864818-8 (Version None)
Quarter: 2010Q3

REPORT INFORMATION
  Report Type: 
  Country: None (occurrence: None)
  Receive Date: 20100721
  Receipt Date: 20080407
  Transmission Date: 20110219
  Serious: No
  Sender: FDA-Public Use
  Company Number: US-PFIZER INC-2008031682

PATIENT
  Sex: Female
  Weight: 54.4 kg

DRUGS (2)
  1. CHANTIX [Suspect]
     Indication: SMOKING CESSATION THERAPY
     Route: 048
     Dates: start: 20080203, end: 20080210
  2. IBANDRONATE SODIUM [Concomitant]

REACTIONS (9)
  - BRONCHITIS [None]
  - CONSTIPATION [None]
  - DIARRHOEA [None]
  - FATIGUE [None]
  - FLATULENCE [None]
  - GINGIVAL PAIN [None]
  - GINGIVITIS [None]
  - MIDDLE INSOMNIA [None]
  - SLEEP DISORDER [None]
